FAERS Safety Report 5379024-6 (Version None)
Quarter: 2007Q3

REPORT INFORMATION
  Report Type: 
  Country: None (occurrence: None)
  Receive Date: 20070705
  Receipt Date: 20070625
  Transmission Date: 20080115
  Serious: Yes (Life-Threatening)
  Sender: FDA-Public Use
  Company Number: US-BRISTOL-MYERS SQUIBB COMPANY-13785811

PATIENT
  Age: 51 Year
  Sex: Male
  Weight: 130 kg

DRUGS (18)
  1. CETUXIMAB [Suspect]
     Indication: SQUAMOUS CELL CARCINOMA
     Dates: start: 20070405, end: 20070405
  2. CISPLATIN [Suspect]
     Indication: SQUAMOUS CELL CARCINOMA
     Dates: start: 20070426, end: 20070426
  3. TAXOTERE [Suspect]
     Indication: SQUAMOUS CELL CARCINOMA
     Dates: start: 20070426, end: 20070426
  4. FLUOROURACIL [Suspect]
     Indication: SQUAMOUS CELL CARCINOMA
     Dates: start: 20070426, end: 20070426
  5. ASPIRIN [Concomitant]
     Route: 048
  6. ATIVAN [Concomitant]
     Indication: NAUSEA
     Route: 048
  7. CIPROFLOXACIN [Concomitant]
     Route: 048
  8. CLOBETASOL PROPIONATE [Concomitant]
     Route: 061
  9. DEXAMETHASONE [Concomitant]
     Route: 048
  10. MAGNESIUM OXIDE [Concomitant]
     Route: 048
  11. MINOCYCLINE HCL [Concomitant]
     Route: 048
  12. NYSTATIN [Concomitant]
     Route: 061
  13. OXYCODONE HCL [Concomitant]
     Indication: PAIN
     Route: 048
  14. POTASSIUM CHLORIDE [Concomitant]
     Route: 048
  15. REGLAN [Concomitant]
     Indication: NAUSEA
     Route: 048
  16. ZOFRAN [Concomitant]
     Indication: NAUSEA
  17. BACLOFEN [Concomitant]
     Indication: HICCUPS
     Route: 048
     Dates: start: 20070406, end: 20070510
  18. LEVOFLOXACIN [Concomitant]
     Route: 048
     Dates: start: 20070402, end: 20070419

REACTIONS (2)
  - PULMONARY EMBOLISM [None]
  - RENAL CELL CARCINOMA STAGE UNSPECIFIED [None]
